FAERS Safety Report 21392073 (Version 1)
Quarter: 2022Q3

REPORT INFORMATION
  Report Type: Spontaneous
  Country: DK (occurrence: DK)
  Receive Date: 20220929
  Receipt Date: 20220929
  Transmission Date: 20221027
  Serious: Yes (Hospitalization)
  Sender: FDA-Public Use
  Company Number: None

PATIENT
  Age: 55 Year
  Sex: Female
  Weight: 76 kg

DRUGS (5)
  1. LANSOPRAZOLE [Suspect]
     Active Substance: LANSOPRAZOLE
     Indication: Prophylaxis against gastrointestinal ulcer
     Dosage: STRENGTH: 30 MG. JUN2021: INCREASE FROM ONCE DAILY TO TWICE DAILY. MAY2022: PAUSE 14 DAYS.
     Route: 048
     Dates: start: 2015
  2. CHLORZOXAZONE [Concomitant]
     Active Substance: CHLORZOXAZONE
     Indication: Pain
     Dates: start: 20170126
  3. ACETAMINOPHEN [Concomitant]
     Active Substance: ACETAMINOPHEN
     Indication: Pain
     Dosage: UNK
     Route: 048
     Dates: start: 2015
  4. IBUPROFEN [Concomitant]
     Active Substance: IBUPROFEN
     Indication: Pain
     Dosage: UNK
     Route: 048
     Dates: start: 2015
  5. NALTREXONE [Concomitant]
     Active Substance: NALTREXONE
     Indication: Pain
     Dosage: STRENGTH: 6.75 MG
     Dates: start: 201909

REACTIONS (3)
  - Erythema [Recovered/Resolved]
  - Hot flush [Recovered/Resolved]
  - Pyrexia [Recovered/Resolved]

NARRATIVE: CASE EVENT DATE: 20210701
